FAERS Safety Report 9539317 (Version 2)
Quarter: 2013Q3

REPORT INFORMATION
  Report Type: Report from Study
  Country: IT (occurrence: IT)
  Receive Date: 20130920
  Receipt Date: 20130920
  Transmission Date: 20140515
  Serious: Yes (Death, Hospitalization)
  Sender: FDA-Public Use
  Company Number: IT-B.I. PHARMACEUTICALS,INC./RIDGEFIELD-2013-BI-28770BI

PATIENT
  Age: 73 Year
  Sex: Male
  Weight: 59 kg

DRUGS (11)
  1. BIBW 2992 [Suspect]
     Indication: SQUAMOUS CELL CARCINOMA OF LUNG
     Dosage: 40 MG
     Route: 048
     Dates: start: 20130902, end: 20130912
  2. PANTOPRAZOLE [Concomitant]
     Indication: PROPHYLAXIS
     Dosage: 20 MG
     Route: 048
     Dates: start: 20130816
  3. BISOPROLOL [Concomitant]
     Indication: ARRHYTHMIA PROPHYLAXIS
     Dosage: 5 MG
     Route: 048
     Dates: start: 20130816
  4. METHIMAZOLE [Concomitant]
     Indication: HYPERTHYROIDISM
     Dosage: TOTAL DAILY DOSE: 2.5 MG (4 TIMES PER WEEK)
     Route: 048
     Dates: start: 1993
  5. CALCIUM+VIT D [Concomitant]
     Indication: OSTEOPOROSIS
     Dosage: TOTAL DAILY DOSE: 500 + 400 MG
     Route: 048
  6. PREDNISONE [Concomitant]
     Indication: PROPHYLAXIS
     Dosage: 10 MG
     Route: 048
     Dates: start: 20130816
  7. FUROSEMIDE [Concomitant]
     Indication: OEDEMA PERIPHERAL
     Dosage: 500 MG
     Route: 048
     Dates: start: 20130816
  8. ENOXAPARIN [Concomitant]
     Indication: PROPHYLAXIS
     Dosage: 6000 U
     Route: 058
  9. OXYCODONE/NALOXONE [Concomitant]
     Indication: CHEST PAIN
     Dosage: TOTAL DAILY DOSE: 20/10 MG
     Route: 048
     Dates: start: 20130816
  10. MORPHINE SULFATE [Concomitant]
     Indication: PAIN
     Dosage: 10 MG
     Route: 048
     Dates: start: 20130816
  11. ACETAMINOPHEN [Concomitant]
     Indication: PAIN
     Dosage: TOTAL DAILY DOSE: MAX 3 G (DIE, AS NEED)
     Route: 048
     Dates: start: 20120816

REACTIONS (1)
  - Interstitial lung disease [Fatal]
